FAERS Safety Report 19459708 (Version 2)
Quarter: 2021Q2

REPORT INFORMATION
  Report Type: Report from Study
  Country: US (occurrence: US)
  Receive Date: 20210624
  Receipt Date: 20210629
  Transmission Date: 20210717
  Serious: Yes (Hospitalization, Other)
  Sender: FDA-Public Use
  Company Number: US-BRISTOL-MYERS SQUIBB COMPANY-BMS-2021-058951

PATIENT
  Age: 73 Year
  Sex: Male
  Weight: 89.9 kg

DRUGS (5)
  1. PREDNISONE. [Suspect]
     Active Substance: PREDNISONE
     Indication: RASH
     Dosage: 80 MILLIGRAM DAILY
     Route: 065
     Dates: start: 20210112
  2. HYDROCHLOROTHIAZIDE. [Concomitant]
     Active Substance: HYDROCHLOROTHIAZIDE
     Indication: PRODUCT USED FOR UNKNOWN INDICATION
     Route: 065
  3. MIRTAZAPINE. [Concomitant]
     Active Substance: MIRTAZAPINE
     Indication: PRODUCT USED FOR UNKNOWN INDICATION
     Route: 065
  4. IPILIMUMAB [Suspect]
     Active Substance: IPILIMUMAB
     Indication: MYELODYSPLASTIC SYNDROME
     Dosage: 950 MILLIGRAM
     Route: 042
     Dates: start: 20201109, end: 20210129
  5. DECITABINE. [Suspect]
     Active Substance: DECITABINE
     Indication: MYELODYSPLASTIC SYNDROME
     Dosage: 43 MG X 5 DAYS FOR A TOTAL DOSE OF 215 MG DURING THIS COURSE OF TREATMENT
     Route: 042
     Dates: start: 20201012, end: 20210205

REACTIONS (3)
  - Colitis [Recovering/Resolving]
  - Febrile neutropenia [Recovering/Resolving]
  - Perirectal abscess [Recovering/Resolving]

NARRATIVE: CASE EVENT DATE: 20210125
